FAERS Safety Report 9440492 (Version 3)
Quarter: 2013Q3

REPORT INFORMATION
  Report Type: Spontaneous
  Country: DK (occurrence: JP)
  Receive Date: 20130805
  Receipt Date: 20130903
  Transmission Date: 20140515
  Serious: Yes (Hospitalization, Other)
  Sender: FDA-Public Use
  Company Number: JP-FRI-1000047438

PATIENT
  Age: 92 Year
  Sex: Female

DRUGS (9)
  1. LEXAPRO [Suspect]
     Indication: DEPRESSION
     Dosage: 10 MG
     Route: 048
     Dates: start: 20130708, end: 20130719
  2. LEXAPRO [Suspect]
     Dosage: 5 MG
     Route: 048
     Dates: start: 20130720, end: 20130723
  3. LANSOPRAZOLE-OD [Suspect]
     Indication: GASTRIC ULCER
     Dosage: 15 MG
     Route: 048
  4. SULPIRIDE [Suspect]
     Dosage: 50 MG
     Route: 048
  5. CRAVIT [Suspect]
     Dosage: 1 DF
     Route: 048
  6. POLYFUL [Concomitant]
     Dosage: 1 GRAM
     Route: 048
  7. POLLAKISU [Concomitant]
     Dosage: 4 MG
     Route: 048
  8. DOPACOL [Concomitant]
     Dosage: 100 MG
     Route: 048
  9. AROTINOLOL HYDROCHLORIDE [Concomitant]
     Dosage: 5 MG
     Route: 048

REACTIONS (6)
  - Electrocardiogram QT prolonged [Recovering/Resolving]
  - Ventricular fibrillation [Recovering/Resolving]
  - Ventricular tachycardia [Recovering/Resolving]
  - Drug interaction [Recovering/Resolving]
  - Decreased appetite [Recovering/Resolving]
  - Malaise [Recovering/Resolving]
